FAERS Safety Report 11891938 (Version 1)
Quarter: 2016Q1

REPORT INFORMATION
  Report Type: Spontaneous
  Country: US (occurrence: None)
  Receive Date: 20160105
  Receipt Date: 20160105
  Transmission Date: 20160526
  Serious: No
  Sender: FDA-Public Use
  Company Number: None

PATIENT
  Age: 52 Year
  Sex: Male

DRUGS (1)
  1. SOVALDI [Suspect]
     Active Substance: SOFOSBUVIR
     Dosage: STRENGTH: 400
     Dates: start: 20151011

REACTIONS (1)
  - Frequent bowel movements [None]

NARRATIVE: CASE EVENT DATE: 20151018
